FAERS Safety Report 7671494-3 (Version None)
Quarter: 2011Q3

REPORT INFORMATION
  Report Type: 
  Country: None (occurrence: None)
  Receive Date: 20110809
  Receipt Date: 20110801
  Transmission Date: 20111222
  Serious: Yes (Hospitalization)
  Sender: FDA-Public Use
  Company Number: US-SANOFI-AVENTIS-2011SA043112

PATIENT
  Age: 73 Year
  Sex: Female

DRUGS (4)
  1. PREDNISONE [Suspect]
     Route: 065
  2. HUMALOG [Concomitant]
  3. SOLOSTAR [Suspect]
     Dates: start: 20100101
  4. LANTUS [Suspect]
     Dosage: DOSE:40 UNIT(S)
     Route: 058
     Dates: start: 20100101

REACTIONS (5)
  - HOSPITALISATION [None]
  - PRODUCT QUALITY ISSUE [None]
  - INJECTION SITE HAEMATOMA [None]
  - BLOOD GLUCOSE INCREASED [None]
  - FALL [None]
